FAERS Safety Report 20058847 (Version 2)
Quarter: 2022Q1

REPORT INFORMATION
  Report Type: Spontaneous
  Country: US (occurrence: US)
  Receive Date: 20211111
  Receipt Date: 20220114
  Transmission Date: 20220423
  Serious: No
  Sender: FDA-Public Use
  Company Number: US-BEH-2021137854

PATIENT
  Sex: Female

DRUGS (6)
  1. HIZENTRA [Suspect]
     Active Substance: HUMAN IMMUNOGLOBULIN G
     Indication: Immunodeficiency
     Dosage: 14 GRAM, QOW
     Route: 058
  2. HIZENTRA [Suspect]
     Active Substance: HUMAN IMMUNOGLOBULIN G
     Dosage: 14 GRAM, QOW
     Route: 058
  3. METOPROLOL [Concomitant]
     Active Substance: METOPROLOL
  4. CALCIUM\VITAMIN D [Concomitant]
     Active Substance: CALCIUM\VITAMIN D
  5. VITAMIN B12 [Concomitant]
     Active Substance: CYANOCOBALAMIN
  6. SIMVASTATIN [Concomitant]
     Active Substance: SIMVASTATIN

REACTIONS (7)
  - Pruritus [Recovered/Resolved]
  - Recalled product administered [Recovered/Resolved]
  - Erythema [Recovered/Resolved]
  - Recalled product administered [Recovered/Resolved]
  - Skin induration [Recovered/Resolved]
  - Recalled product administered [Recovered/Resolved]
  - Infusion site extravasation [Recovered/Resolved]
